FAERS Safety Report 24825206 (Version 1)
Quarter: 2025Q1

REPORT INFORMATION
  Report Type: Spontaneous
  Country: US (occurrence: None)
  Receive Date: 20250109
  Receipt Date: 20250109
  Transmission Date: 20250409
  Serious: No
  Sender: FDA-CTU
  Company Number: None

PATIENT
  Age: 66 Year
  Sex: Female
  Weight: 58.05 kg

DRUGS (5)
  1. NITROFURANTOIN [Suspect]
     Active Substance: NITROFURANTOIN
     Indication: Urinary tract infection
     Dosage: TWICE A DAY ORAL ?
     Route: 048
  2. PINK BISMUTH [Suspect]
     Active Substance: BISMUTH SUBSALICYLATE
     Indication: Gastrointestinal disorder
     Dosage: 2 TABLETS AT BEDTIME ORAL ?
     Route: 048
  3. MINOXIDIL [Concomitant]
     Active Substance: MINOXIDIL
  4. ATORVASTATIN [Concomitant]
     Active Substance: ATORVASTATIN
  5. CALCIUM\VITAMIN D [Concomitant]
     Active Substance: CALCIUM\VITAMIN D

REACTIONS (1)
  - Tongue discolouration [None]

NARRATIVE: CASE EVENT DATE: 20250109
